FAERS Safety Report 20542924 (Version 1)
Quarter: 2022Q1

REPORT INFORMATION
  Report Type: Spontaneous
  Country: US (occurrence: US)
  Receive Date: 20220302
  Receipt Date: 20220302
  Transmission Date: 20220423
  Serious: Yes (Life-Threatening)
  Sender: FDA-Public Use
  Company Number: US-PERRIGO-21US007152

PATIENT
  Age: 13 Year
  Sex: Male
  Weight: 67.12 kg

DRUGS (2)
  1. SCOPOLAMINE [Suspect]
     Active Substance: SCOPOLAMINE
     Indication: Prophylaxis against motion sickness
     Dosage: 1 MG, SINGLE
     Route: 062
     Dates: start: 20210524, end: 20210527
  2. DEXTROAMPHET SACCHARAT, AMPHET ASPARTATE, DEXTROAMPHET SULFATE AND AMP [Concomitant]
     Active Substance: AMPHETAMINE ASPARTATE\AMPHETAMINE SULFATE\DEXTROAMPHETAMINE SACCHARATE\DEXTROAMPHETAMINE SULFATE
     Indication: Attention deficit hyperactivity disorder
     Dosage: 35 MG, UNKNOWN
     Route: 065
     Dates: start: 2020

REACTIONS (9)
  - Psychotic disorder [Recovered/Resolved]
  - Delusion [Recovered/Resolved]
  - Hallucination, visual [Recovered/Resolved]
  - Hallucination, auditory [Recovered/Resolved]
  - Somnambulism [Recovered/Resolved]
  - Dry throat [Unknown]
  - Confusional state [Recovered/Resolved]
  - Dry mouth [Unknown]
  - Product administered to patient of inappropriate age [Recovered/Resolved]

NARRATIVE: CASE EVENT DATE: 20210524
